FAERS Safety Report 12755061 (Version 1)
Quarter: 2016Q3

REPORT INFORMATION
  Report Type: Spontaneous
  Country: US (occurrence: US)
  Receive Date: 20160916
  Receipt Date: 20160916
  Transmission Date: 20161109
  Serious: Yes (Hospitalization)
  Sender: FDA-Public Use
  Company Number: US-MEDA-2016090050

PATIENT
  Age: 72 Year
  Sex: Female
  Weight: 70 kg

DRUGS (25)
  1. CELECOXIB. [Concomitant]
     Active Substance: CELECOXIB
     Indication: OSTEOARTHRITIS
     Route: 048
     Dates: start: 20071228, end: 20090921
  2. AMLODIPINE [Concomitant]
     Active Substance: AMLODIPINE BESYLATE
     Dates: start: 20030101, end: 20090921
  3. GABAPENTIN. [Concomitant]
     Active Substance: GABAPENTIN
     Dates: start: 20090928
  4. OXYBUTYNIN [Concomitant]
     Active Substance: OXYBUTYNIN
     Dates: start: 20050101, end: 20090921
  5. METOPROLOL. [Concomitant]
     Active Substance: METOPROLOL
     Route: 048
     Dates: start: 20090928
  6. FUROSEMIDE. [Concomitant]
     Active Substance: FUROSEMIDE
     Dates: start: 20030101, end: 20090921
  7. LINSEED OIL [Concomitant]
     Active Substance: LINSEED OIL
     Dates: start: 20050101, end: 20090921
  8. ESOMEPRAZOLE [Concomitant]
     Active Substance: ESOMEPRAZOLE
     Dates: start: 20071227, end: 20090921
  9. CENTRUM SILVER [Concomitant]
     Active Substance: MINERALS\VITAMINS
     Dates: start: 19950101, end: 20090921
  10. IRON [Concomitant]
     Active Substance: IRON
     Dates: start: 20090928
  11. DEMADEX [Suspect]
     Active Substance: TORSEMIDE
     Indication: OEDEMA PERIPHERAL
     Route: 048
     Dates: start: 20090928, end: 20090930
  12. ASPIRIN. [Concomitant]
     Active Substance: ASPIRIN
     Dates: start: 20000101, end: 20090921
  13. CALTRATE WITH VITAMIN D [Concomitant]
     Active Substance: CALCIUM CARBONATE\CHOLECALCIFEROL
     Dates: start: 19950101, end: 20090921
  14. SALAGEN [Concomitant]
     Active Substance: PILOCARPINE HYDROCHLORIDE
     Dates: start: 20090928
  15. LIPITOR [Concomitant]
     Active Substance: ATORVASTATIN CALCIUM
     Dates: start: 20090928
  16. OXYBUTYNIN [Concomitant]
     Active Substance: OXYBUTYNIN
     Dates: start: 20090928
  17. NITROGLYCERIN. [Concomitant]
     Active Substance: NITROGLYCERIN
     Dates: start: 19980101, end: 20090921
  18. METOPROLOL. [Concomitant]
     Active Substance: METOPROLOL
     Route: 048
     Dates: start: 20090101
  19. ALENDRONATE SODIUM. [Concomitant]
     Active Substance: ALENDRONATE SODIUM
     Dates: start: 20090106, end: 20090921
  20. EVOXAC [Concomitant]
     Active Substance: CEVIMELINE HYDROCHLORIDE
     Dates: start: 20080211, end: 20090921
  21. ASPIRIN. [Concomitant]
     Active Substance: ASPIRIN
     Dates: start: 20090928
  22. ISOSORBIDE. [Concomitant]
     Active Substance: ISOSORBIDE
  23. LIPITOR [Concomitant]
     Active Substance: ATORVASTATIN CALCIUM
     Dates: start: 20080615, end: 20090921
  24. ACTONEL [Concomitant]
     Active Substance: RISEDRONATE SODIUM
     Dates: start: 20090928
  25. GABAPENTIN. [Concomitant]
     Active Substance: GABAPENTIN
     Dates: start: 20050101, end: 20090921

REACTIONS (1)
  - Syncope [Recovered/Resolved]

NARRATIVE: CASE EVENT DATE: 20090929
